FAERS Safety Report 10042555 (Version 2)
Quarter: 2014Q1

REPORT INFORMATION
  Report Type: Spontaneous
  Country: JP (occurrence: JP)
  Receive Date: 20140327
  Receipt Date: 20140331
  Transmission Date: 20141002
  Serious: Yes (Other)
  Sender: FDA-Public Use
  Company Number: JP-PFIZER INC-2014085128

PATIENT
  Sex: 0

DRUGS (2)
  1. LYRICA [Suspect]
     Indication: POST HERPETIC NEURALGIA
     Dosage: UNK
     Route: 048
  2. PLETAAL [Concomitant]
     Route: 048

REACTIONS (2)
  - Pancytopenia [Unknown]
  - Abdominal discomfort [Unknown]
